FAERS Safety Report 9519572 (Version 1)
Quarter: 2013Q3

REPORT INFORMATION
  Report Type: Spontaneous
  Country: GR (occurrence: GR)
  Receive Date: 20130912
  Receipt Date: 20130912
  Transmission Date: 20140515
  Serious: Yes (Other)
  Sender: FDA-Public Use
  Company Number: PHHY2013GR096696

PATIENT
  Age: 57 Year
  Sex: Male

DRUGS (5)
  1. RIFAMPICIN [Suspect]
     Indication: PULMONARY TUBERCULOSIS
  2. ISONIAZID [Concomitant]
  3. ETHAMBUTOL [Concomitant]
  4. PYRAZINAMIDE [Concomitant]
  5. MOXIFLOXACIN [Concomitant]

REACTIONS (15)
  - Hypotension [Recovered/Resolved]
  - Hypoxia [Recovered/Resolved]
  - Metabolic acidosis [Recovered/Resolved]
  - Renal failure acute [Recovered/Resolved]
  - Anaemia [Recovered/Resolved]
  - Haemolysis [Recovered/Resolved]
  - Tubulointerstitial nephritis [Recovered/Resolved]
  - Decreased appetite [Recovered/Resolved]
  - Fatigue [Recovered/Resolved]
  - Weight decreased [Recovered/Resolved]
  - Vomiting [Recovered/Resolved]
  - Malaise [Recovered/Resolved]
  - Proteinuria [Recovered/Resolved]
  - Oliguria [Recovered/Resolved]
  - Haematuria [Recovered/Resolved]
